FAERS Safety Report 10905060 (Version 1)
Quarter: 2015Q1

REPORT INFORMATION
  Report Type: Spontaneous
  Country: US (occurrence: US)
  Receive Date: 20150311
  Receipt Date: 20150311
  Transmission Date: 20150721
  Serious: No
  Sender: FDA-Public Use
  Company Number: US-BAYER-2015-034117

PATIENT
  Age: 89 Year
  Sex: Female
  Weight: 67 kg

DRUGS (8)
  1. VITAMIN D [Concomitant]
     Active Substance: CHOLECALCIFEROL
  2. TUMS [CALCIUM CARBONATE,MAGNESIUM CARBONATE] [Concomitant]
  3. CENTRUM SILVER [Concomitant]
     Active Substance: VITAMINS
  4. METOPROLOL [Concomitant]
     Active Substance: METOPROLOL
  5. ALEVE [Suspect]
     Active Substance: NAPROXEN SODIUM
     Indication: ANALGESIC THERAPY
     Dosage: 1 DF, PRN
     Route: 048
     Dates: start: 2014
  6. TYLENOL [CHLORPHENAM MAL,DEXTROMET HBR,PARACET,PSEUDOEPH HCL] [Concomitant]
  7. BAYER LOW DOSE [Suspect]
     Active Substance: ASPIRIN
     Indication: ISCHAEMIC HEART DISEASE PROPHYLAXIS
     Dosage: 1 DF, QD
     Route: 048
  8. LIPITOR [Concomitant]
     Active Substance: ATORVASTATIN CALCIUM

REACTIONS (3)
  - Drug ineffective [Unknown]
  - Abdominal discomfort [Recovered/Resolved]
  - Off label use [None]

NARRATIVE: CASE EVENT DATE: 20150303
